FAERS Safety Report 10011811 (Version 3)
Quarter: 2014Q3

REPORT INFORMATION
  Report Type: Spontaneous
  Country: DK (occurrence: DK)
  Receive Date: 20140314
  Receipt Date: 20140708
  Transmission Date: 20150326
  Serious: Yes (Death)
  Sender: FDA-Public Use
  Company Number: DK-UCBSA-114256

PATIENT
  Age: 66 Year
  Sex: Female
  Weight: 50 kg

DRUGS (22)
  1. KEPPRA [Suspect]
     Active Substance: LEVETIRACETAM
     Dosage: 500 MG, 2X/DAY (BID)
     Route: 042
     Dates: start: 20140227, end: 20140228
  2. DEPAKINE [Suspect]
     Active Substance: VALPROATE SODIUM
     Dosage: LOADING DOSE: 2000MG
     Route: 042
     Dates: start: 20140225, end: 20140225
  3. DEPAKINE [Suspect]
     Active Substance: VALPROATE SODIUM
     Dosage: 600 MG, 2X/DAY (BID)
     Route: 042
     Dates: start: 20140226, end: 20140228
  4. FOSPHENYTOIN [Suspect]
     Active Substance: FOSPHENYTOIN\FOSPHENYTOIN SODIUM
     Dosage: 50 MG, 2X/DAY (BID)
     Route: 042
     Dates: start: 20140225, end: 20140225
  5. TAZOCIN [Concomitant]
     Active Substance: PIPERACILLIN SODIUM\TAZOBACTAM SODIUM
     Indication: RENAL IMPAIRMENT
     Dosage: 4 G, 2X/DAY (BID)
     Dates: start: 20140224, end: 201402
  6. FOSPHENYTOIN [Suspect]
     Active Substance: FOSPHENYTOIN\FOSPHENYTOIN SODIUM
     Dosage: 100 MG, 2X/DAY (BID)
     Route: 042
     Dates: start: 20140225, end: 20140228
  7. METRONIDAZOLE. [Concomitant]
     Active Substance: METRONIDAZOLE
     Dosage: 50 MG, 3X/DAY (TID)
     Dates: start: 20140224, end: 201402
  8. PINEX [Concomitant]
     Active Substance: ACETAMINOPHEN
     Indication: BODY TEMPERATURE INCREASED
     Dosage: UNK
     Dates: start: 20140226
  9. CALCIUM CHLORIDE. [Concomitant]
     Active Substance: CALCIUM CHLORIDE
     Dosage: UNK
     Dates: start: 20140224
  10. VIMPAT [Suspect]
     Active Substance: LACOSAMIDE
     Indication: STATUS EPILEPTICUS
     Dosage: MAINTAINANCE DOSE
     Dates: start: 20140227, end: 20140227
  11. VIMPAT [Suspect]
     Active Substance: LACOSAMIDE
     Indication: STATUS EPILEPTICUS
     Dosage: 400 MG
     Route: 042
     Dates: start: 20140227, end: 20140228
  12. DEPAKINE [Suspect]
     Active Substance: VALPROATE SODIUM
     Indication: STATUS EPILEPTICUS
     Dosage: LOADING DOSE: 1800MG
     Route: 042
     Dates: start: 20140224, end: 20140224
  13. PANTOLOC [Concomitant]
     Active Substance: PANTOPRAZOLE SODIUM
     Indication: HAEMATEMESIS
     Dosage: 20MG
     Dates: start: 20140226
  14. PERFALGAN [Concomitant]
     Active Substance: ACETAMINOPHEN
     Dosage: 1 G I.V. MAXIMUM X 4 WITH 4 HOURS BETWEEN ADMINISTERED AS INFUSION OVER 15 MINUTES
     Dates: start: 20140225
  15. KEPPRA [Suspect]
     Active Substance: LEVETIRACETAM
     Indication: STATUS EPILEPTICUS
     Dosage: LOADING DOSE: 1500MG
     Route: 042
     Dates: start: 20140226, end: 20140226
  16. FOSPHENYTOIN [Suspect]
     Active Substance: FOSPHENYTOIN\FOSPHENYTOIN SODIUM
     Indication: STATUS EPILEPTICUS
     Dosage: LOADING DOSE: 750MG
     Route: 042
     Dates: start: 20140224, end: 20140224
  17. POTASSIUM CHLORIDE W/SODIUM CHLORIDE [Concomitant]
     Dosage: 1L SODIUM-POTASSIYM CHLORIDE
     Dates: start: 20140224, end: 20140224
  18. PHENYTOIN. [Concomitant]
     Active Substance: PHENYTOIN
     Dosage: MAINTAINENCE DOSE, 50MGX2
  19. IKTORIVIL [Concomitant]
     Active Substance: CLONAZEPAM
     Indication: CONVULSION
  20. PENICILLIN [Concomitant]
     Active Substance: PENICILLIN
     Dosage: 2MIUX3
     Route: 042
     Dates: start: 20140224
  21. ORFIRIL [Concomitant]
     Active Substance: VALPROIC ACID
     Dosage: UNK
  22. STESOLID MR [Concomitant]
     Dosage: 10MG
     Dates: start: 20140224

REACTIONS (1)
  - Sudden death [Fatal]

NARRATIVE: CASE EVENT DATE: 20140228
